FAERS Safety Report 8454644-0 (Version None)
Quarter: 2012Q2

REPORT INFORMATION
  Report Type: 
  Country: None (occurrence: None)
  Receive Date: 20120621
  Receipt Date: 20120615
  Transmission Date: 20120825
  Serious: No
  Sender: FDA-Public Use
  Company Number: US-BIOGENIDEC-2012BI021659

PATIENT
  Sex: Male

DRUGS (3)
  1. AVONEX [Suspect]
     Route: 030
     Dates: start: 20030801, end: 20120602
  2. AVONEX [Suspect]
     Route: 030
     Dates: start: 20120609
  3. AVONEX [Suspect]
     Indication: MULTIPLE SCLEROSIS
     Route: 030
     Dates: start: 20000601, end: 20030801

REACTIONS (10)
  - TREMOR [None]
  - INJECTION SITE ATROPHY [None]
  - INJECTION SITE PAIN [None]
  - INJECTION SITE HYPERTROPHY [None]
  - ANXIETY [None]
  - INJECTION SITE IRRITATION [None]
  - INJECTION SITE HAEMORRHAGE [None]
  - CHILLS [None]
  - MIGRAINE [None]
  - INJECTION SITE EXTRAVASATION [None]
